FAERS Safety Report 23143367 (Version 1)
Quarter: 2023Q4

REPORT INFORMATION
  Report Type: Other
  Country: US (occurrence: None)
  Receive Date: 20231103
  Receipt Date: 20231103
  Transmission Date: 20240110
  Serious: Yes (Hospitalization)
  Sender: FDA-Public Use
  Company Number: US-ROCHE-3186209

PATIENT
  Age: 65 Year
  Sex: Male
  Weight: 97.61 kg

DRUGS (13)
  1. OCREVUS [Suspect]
     Active Substance: OCRELIZUMAB
     Indication: Relapsing multiple sclerosis
     Route: 042
  2. OCREVUS [Suspect]
     Active Substance: OCRELIZUMAB
     Indication: Vitamin D deficiency
     Dosage: DATE OF TREATMENT: 09/SEP/2020, 23/SEP/2020, 21/FEB/2021, 09/SEP/2021, 10/MAR/2022, 09/SEP/2022, DAT
     Route: 042
     Dates: start: 2019
  3. OCREVUS [Suspect]
     Active Substance: OCRELIZUMAB
     Indication: Vitamin B complex deficiency
     Route: 042
     Dates: start: 2018
  4. OCREVUS [Suspect]
     Active Substance: OCRELIZUMAB
     Indication: Primary progressive multiple sclerosis
  5. VITAMIN C [Concomitant]
     Active Substance: ASCORBIC ACID
     Route: 048
     Dates: start: 2015
  6. VITAMIN E [Concomitant]
     Active Substance: .ALPHA.-TOCOPHEROL
     Route: 048
     Dates: start: 2015
  7. VITAMIN B12 [Concomitant]
     Active Substance: CYANOCOBALAMIN
     Route: 048
     Dates: start: 2014
  8. VITAMIN B12 [Concomitant]
     Active Substance: CYANOCOBALAMIN
     Route: 048
     Dates: start: 2014
  9. DALFAMPRIDINE [Concomitant]
     Active Substance: DALFAMPRIDINE
  10. MOEXIPRIL [Concomitant]
     Active Substance: MOEXIPRIL
  11. VITAMIN D2 [Concomitant]
     Active Substance: ERGOCALCIFEROL
  12. ALFUZOSIN [Concomitant]
     Active Substance: ALFUZOSIN
  13. METFORMIN [Concomitant]
     Active Substance: METFORMIN HYDROCHLORIDE

REACTIONS (8)
  - Fall [Unknown]
  - Asthenia [Recovered/Resolved]
  - COVID-19 [Recovered/Resolved]
  - Asthenia [Not Recovered/Not Resolved]
  - Fatigue [Not Recovered/Not Resolved]
  - Dehydration [Recovered/Resolved]
  - Mobility decreased [Not Recovered/Not Resolved]
  - Gait disturbance [Not Recovered/Not Resolved]

NARRATIVE: CASE EVENT DATE: 20200301
